FAERS Safety Report 23529990 (Version 1)
Quarter: 2024Q1

REPORT INFORMATION
  Report Type: Spontaneous
  Country: AU (occurrence: AU)
  Receive Date: 20240216
  Receipt Date: 20240216
  Transmission Date: 20240409
  Serious: Yes (Hospitalization, Other)
  Sender: FDA-Public Use
  Company Number: AU-GENERIC HEALTH PTY. LTD.-2024-01048

PATIENT
  Age: 20 Year
  Sex: Male

DRUGS (6)
  1. FLUOXETINE [Interacting]
     Active Substance: FLUOXETINE HYDROCHLORIDE
     Indication: Bipolar disorder
     Dosage: 40 MILLIGRAM
     Route: 065
  2. FLUOXETINE [Interacting]
     Active Substance: FLUOXETINE HYDROCHLORIDE
     Dosage: 560 MILLIGRAM
     Route: 065
  3. MELATONIN [Interacting]
     Active Substance: MELATONIN
     Indication: Bipolar disorder
     Dosage: 10 MILLIGRAM
     Route: 065
  4. LITHIUM [Interacting]
     Active Substance: LITHIUM
     Indication: Bipolar disorder
     Dosage: UNK
     Route: 065
  5. HERBALS\TETRAHYDROCANNABINOL UNSPECIFIED [Interacting]
     Active Substance: HERBALS\TETRAHYDROCANNABINOL UNSPECIFIED
     Indication: Product used for unknown indication
     Dosage: UNK, 28.5 MG/ML, CANNABIS OIL (DELTA9-TETRAHYDROCANNABINOL 28.5 MG/ML + CANNABIDIOL LESS THAN 1 MG/M
     Route: 048
  6. CANNABIDIOL [Interacting]
     Active Substance: CANNABIDIOL
     Indication: Product used for unknown indication
     Dosage: UNK, LESS THAN 1 MG/ML
     Route: 048

REACTIONS (4)
  - Generalised tonic-clonic seizure [Unknown]
  - Serotonin syndrome [Unknown]
  - Drug interaction [Unknown]
  - Overdose [Unknown]
